FAERS Safety Report 22344078 (Version 2)
Quarter: 2023Q2

REPORT INFORMATION
  Report Type: Report from Study
  Country: US (occurrence: IT)
  Receive Date: 20230519
  Receipt Date: 20230529
  Transmission Date: 20230722
  Serious: Yes (Hospitalization, Other)
  Sender: FDA-Public Use
  Company Number: IT-AUROBINDO-AUR-APL-2023-036477

PATIENT
  Age: 20 Year
  Sex: Male

DRUGS (7)
  1. MIRTAZAPINE [Suspect]
     Active Substance: MIRTAZAPINE
     Indication: Schizophrenia
     Dosage: UNK
     Route: 065
  2. OLANZAPINE [Suspect]
     Active Substance: OLANZAPINE
     Indication: Schizophrenia
     Dosage: UNK
     Route: 065
  3. PREGABALIN [Suspect]
     Active Substance: PREGABALIN
     Indication: Drug abuse
     Dosage: UNK
     Route: 065
  4. PAROXETINE [Suspect]
     Active Substance: PAROXETINE
     Indication: Schizophrenia
     Dosage: UNK
     Route: 065
  5. QUETIAPINE [Suspect]
     Active Substance: QUETIAPINE
     Indication: Schizophrenia
     Dosage: UNK
     Route: 065
  6. CLONAZEPAM [Suspect]
     Active Substance: CLONAZEPAM
     Indication: Drug abuse
     Dosage: UNK
     Route: 065
  7. KETAMINE [Suspect]
     Active Substance: KETAMINE
     Indication: Drug abuse
     Dosage: UNK
     Route: 065

REACTIONS (14)
  - Affect lability [Recovering/Resolving]
  - Aggression [Recovering/Resolving]
  - Antisocial behaviour [Recovering/Resolving]
  - Anxiety [Recovering/Resolving]
  - Cognitive disorder [Recovering/Resolving]
  - Dysphoria [Recovering/Resolving]
  - Gastrointestinal disorder [Recovering/Resolving]
  - Hyperarousal [Recovering/Resolving]
  - Illusion [Recovering/Resolving]
  - Insomnia [Recovering/Resolving]
  - Thinking abnormal [Recovering/Resolving]
  - Drug abuse [Recovered/Resolved]
  - Drug dependence [Recovered/Resolved]
  - Drug ineffective [Unknown]
